FAERS Safety Report 7888818-4 (Version None)
Quarter: 2011Q4

REPORT INFORMATION
  Report Type: 
  Country: None (occurrence: None)
  Receive Date: 20111102
  Receipt Date: 20111102
  Transmission Date: 20120403
  Serious: Yes (Other)
  Sender: FDA-Public Use
  Company Number: None

PATIENT
  Sex: Female

DRUGS (2)
  1. VENLAFAXINE [Suspect]
     Dosage: 150 MG 2BID
  2. ZOLPIDEM [Suspect]
     Indication: DEPRESSION
     Dosage: 10M Q HS PO
     Route: 048

REACTIONS (4)
  - VOMITING [None]
  - NAUSEA [None]
  - THERAPEUTIC RESPONSE DECREASED [None]
  - INSOMNIA [None]
